FAERS Safety Report 5392988-X (Version None)
Quarter: 2007Q3

REPORT INFORMATION
  Report Type: 
  Country: None (occurrence: None)
  Receive Date: 20070719
  Receipt Date: 20070504
  Transmission Date: 20080115
  Serious: Yes (Hospitalization)
  Sender: FDA-Public Use
  Company Number: MC200700397

PATIENT
  Age: 50 Year
  Sex: Male
  Weight: 100 kg

DRUGS (2)
  1. ANGIOMAX [Suspect]
     Indication: PERCUTANEOUS CORONARY INTERVENTION
     Dosage: 75 MG, BOLUS, IV BOLUS, 175 MG, HR, INTRAVENOUS
     Route: 040
     Dates: start: 20070426, end: 20070426
  2. EPTIFIBA (EPTIFIBATIDE) [Suspect]
     Indication: THROMBOSIS
     Dosage: 18 MG, BOLUS, IV BOLUS, 12 MG, HR, INTRAVENOUS
     Route: 040
     Dates: start: 20070426, end: 20070426

REACTIONS (3)
  - BRAIN STEM INFARCTION [None]
  - CEREBELLAR INFARCTION [None]
  - DRUG INEFFECTIVE [None]
